FAERS Safety Report 20891327 (Version 2)
Quarter: 2022Q2

REPORT INFORMATION
  Report Type: Spontaneous
  Country: US (occurrence: US)
  Receive Date: 20220530
  Receipt Date: 20220621
  Transmission Date: 20220721
  Serious: Yes (Other)
  Sender: FDA-Public Use
  Company Number: US-ORGANON-O2205USA002072

PATIENT
  Age: 37 Year
  Sex: Female
  Weight: 83.447 kg

DRUGS (2)
  1. NEXPLANON [Suspect]
     Active Substance: ETONOGESTREL
     Indication: Contraception
     Dosage: 1 ROD, 68 MG IN LEFT UPPER ARM
     Route: 059
     Dates: start: 20220523, end: 20220524
  2. NEXPLANON [Concomitant]
     Active Substance: ETONOGESTREL
     Indication: Contraception
     Dosage: 1 ROD, 68 MG IN LEFT ARM
     Route: 059
     Dates: start: 20190530, end: 20220523

REACTIONS (5)
  - Device expulsion [Recovered/Resolved]
  - Device issue [Recovered/Resolved]
  - Device difficult to use [Recovered/Resolved]
  - Device placement issue [Recovered/Resolved]
  - Implant site scar [Not Recovered/Not Resolved]

NARRATIVE: CASE EVENT DATE: 20220501
